FAERS Safety Report 8840890 (Version 1)
Quarter: 2012Q4

REPORT INFORMATION
  Report Type: 
  Country: US (occurrence: US)
  Receive Date: 20121015
  Receipt Date: 20121015
  Transmission Date: 20130627
  Serious: Yes (Other)
  Sender: FDA-Public Use
  Company Number: US-ROCHE-1115798

PATIENT
  Sex: Female
  Weight: 40 kg

DRUGS (2)
  1. NUTROPIN AQ [Suspect]
     Indication: DWARFISM
     Route: 058
     Dates: end: 199811
  2. LUPRON DEPOT [Concomitant]
     Route: 065

REACTIONS (6)
  - Osteonecrosis [Unknown]
  - Groin pain [Unknown]
  - Gait disturbance [Unknown]
  - Erythema [Unknown]
  - Tenderness [Unknown]
  - Rash pruritic [Unknown]
